FAERS Safety Report 16350519 (Version 1)
Quarter: 2019Q2

REPORT INFORMATION
  Report Type: Spontaneous
  Country: None (occurrence: US)
  Receive Date: 20190524
  Receipt Date: 20190524
  Transmission Date: 20190711
  Serious: No
  Sender: FDA-Public Use
  Company Number: US-JIANGSU HENGRUI MEDICINE CO., LTD.-2067409

PATIENT
  Sex: Male

DRUGS (7)
  1. DOXORUBICIN [Concomitant]
     Active Substance: DOXORUBICIN
  2. VINCRISTINE [Concomitant]
     Active Substance: VINCRISTINE
  3. CYCLOPHOSPHAMIDE FOR INJECTION USP, 500 MG, 1 G AND 2 G PER SINGLE-DOS [Suspect]
     Active Substance: CYCLOPHOSPHAMIDE
     Indication: DIFFUSE LARGE B-CELL LYMPHOMA
     Dates: end: 20170505
  4. ETOPOSIDE. [Concomitant]
     Active Substance: ETOPOSIDE
  5. RITUXIMAB. [Concomitant]
     Active Substance: RITUXIMAB
  6. PREDNISONE. [Concomitant]
     Active Substance: PREDNISONE
  7. CISPLATIN. [Concomitant]
     Active Substance: CISPLATIN

REACTIONS (1)
  - Disease progression [Unknown]

NARRATIVE: CASE EVENT DATE: 20190221
